FAERS Safety Report 25190984 (Version 3)
Quarter: 2025Q3

REPORT INFORMATION
  Report Type: Report from Study
  Country: US (occurrence: US)
  Receive Date: 20250411
  Receipt Date: 20250811
  Transmission Date: 20251021
  Serious: Yes (Other)
  Sender: ALEXION PHARMACEUTICALS
  Company Number: US-AstraZeneca-CH-00773625A

PATIENT
  Sex: Female

DRUGS (2)
  1. ULTOMIRIS [Suspect]
     Active Substance: RAVULIZUMAB-CWVZ
     Indication: Neuromyelitis optica spectrum disorder
  2. HUMAN IMMUNOGLOBULIN G [Concomitant]
     Active Substance: HUMAN IMMUNOGLOBULIN G
     Route: 065

REACTIONS (20)
  - Incision site abscess [Unknown]
  - Peripheral swelling [Unknown]
  - Memory impairment [Unknown]
  - Decreased appetite [Unknown]
  - Incision site erythema [Unknown]
  - Incision site swelling [Unknown]
  - Candida infection [Unknown]
  - Depression [Unknown]
  - Haematology test abnormal [Unknown]
  - Pyrexia [Recovered/Resolved]
  - Tachycardia [Unknown]
  - Tremor [Unknown]
  - Feeling abnormal [Unknown]
  - Feeling hot [Recovered/Resolved]
  - Limb discomfort [Unknown]
  - Pain [Unknown]
  - Insomnia [Unknown]
  - Fracture [Recovering/Resolving]
  - Pain in extremity [Unknown]
  - Pelvic fluid collection [Unknown]
